FAERS Safety Report 21698985 (Version 1)
Quarter: 2022Q4

REPORT INFORMATION
  Report Type: Spontaneous
  Country: US (occurrence: None)
  Receive Date: 20221207
  Receipt Date: 20221207
  Transmission Date: 20230113
  Serious: No
  Sender: FDA-Public Use
  Company Number: None

PATIENT
  Age: 32 Year
  Sex: Male
  Weight: 115.67 kg

DRUGS (1)
  1. NIRMATRELVIR\RITONAVIR [Suspect]
     Active Substance: NIRMATRELVIR\RITONAVIR
     Dates: start: 20220827, end: 20220831

REACTIONS (3)
  - Rash [None]
  - Urticaria [None]
  - Dermatitis contact [None]

NARRATIVE: CASE EVENT DATE: 20220830
